FAERS Safety Report 4514674-8 (Version None)
Quarter: 2004Q4

REPORT INFORMATION
  Report Type: 
  Country: None (occurrence: None)
  Receive Date: 20041126
  Receipt Date: 20041116
  Transmission Date: 20050328
  Serious: Yes (Other)
  Sender: FDA-Public Use
  Company Number: GBWYE220122NOV04

PATIENT

DRUGS (1)
  1. GEMTUZUMAB OZOGAMICIN (GEMTUZUMAB OZOGAMICIN INJECTION) [Suspect]
     Indication: ACUTE MYELOID LEUKAEMIA

REACTIONS (1)
  - ACUTE RESPIRATORY DISTRESS SYNDROME [None]
